FAERS Safety Report 10307456 (Version 3)
Quarter: 2014Q3

REPORT INFORMATION
  Report Type: Spontaneous
  Country: JP (occurrence: JP)
  Receive Date: 20140716
  Receipt Date: 20140827
  Transmission Date: 20150326
  Serious: Yes (Hospitalization)
  Sender: FDA-Public Use
  Company Number: PHHY2014JP086275

PATIENT
  Age: 43 Year
  Sex: Female
  Weight: 49 kg

DRUGS (2)
  1. ZOMETA [Suspect]
     Active Substance: ZOLEDRONIC ACID
     Indication: METASTASES TO BONE
     Route: 041
     Dates: start: 200706, end: 201107
  2. ZOMETA [Suspect]
     Active Substance: ZOLEDRONIC ACID
     Indication: METASTASES TO BREAST

REACTIONS (10)
  - Fistula [Unknown]
  - Tenderness [Unknown]
  - Osteomyelitis [Unknown]
  - Osteonecrosis of jaw [Recovering/Resolving]
  - Gingival swelling [Unknown]
  - Condition aggravated [Unknown]
  - Gingivitis [Unknown]
  - Erythema [Unknown]
  - Swelling [Unknown]
  - Lymph node pain [Unknown]

NARRATIVE: CASE EVENT DATE: 201101
